FAERS Safety Report 8367841-X (Version None)
Quarter: 2012Q2

REPORT INFORMATION
  Report Type: 
  Country: None (occurrence: None)
  Receive Date: 20120517
  Receipt Date: 20120507
  Transmission Date: 20120825
  Serious: No
  Sender: FDA-Public Use
  Company Number: US-ASTRAZENECA-2012SE29368

PATIENT
  Sex: Female

DRUGS (5)
  1. BLOOD PRESSURE PILL [Concomitant]
  2. NEXIUM [Suspect]
     Indication: FLATULENCE
     Route: 048
  3. PILL FOR THE HEART [Concomitant]
  4. POTASSIUM CHLORIDE [Concomitant]
  5. NEXIUM [Suspect]
     Indication: ERUCTATION
     Route: 048

REACTIONS (3)
  - ABDOMINAL PAIN [None]
  - OFF LABEL USE [None]
  - DIARRHOEA [None]
